FAERS Safety Report 8028207-5 (Version None)
Quarter: 2012Q1

REPORT INFORMATION
  Report Type: 
  Country: None (occurrence: None)
  Receive Date: 20120104
  Receipt Date: 20111227
  Transmission Date: 20120608
  Serious: Yes (Hospitalization, Other)
  Sender: FDA-Public Use
  Company Number: DSU-2011-08734

PATIENT
  Age: 27 Year
  Sex: Female
  Weight: 125.6464 kg

DRUGS (6)
  1. SIMVASTATIN [Concomitant]
  2. WELCHOL [Suspect]
     Indication: HYPERCHOLESTEROLAEMIA
     Dosage: SEE IMAGE
     Route: 048
     Dates: start: 20111103, end: 20111107
  3. WELCHOL [Suspect]
     Indication: HYPERCHOLESTEROLAEMIA
     Dosage: SEE IMAGE
     Route: 048
     Dates: start: 20111003, end: 20111007
  4. LISINOPRIL [Concomitant]
  5. ZOLOFT (SERTRALINE) (SERTRALINE) [Concomitant]
  6. NIASPAN (NICOTINIC ACID) (NICOTINIC ACID) [Concomitant]

REACTIONS (3)
  - ABDOMINAL PAIN [None]
  - SCAN ABDOMEN ABNORMAL [None]
  - GASTROINTESTINAL INFLAMMATION [None]
